FAERS Safety Report 10263566 (Version 2)
Quarter: 2014Q4

REPORT INFORMATION
  Report Type: Spontaneous
  Country: US (occurrence: US)
  Receive Date: 20140626
  Receipt Date: 20141209
  Transmission Date: 20150528
  Serious: Yes (Hospitalization, Other)
  Sender: FDA-Public Use
  Company Number: US-GILEAD-2014-0106718

PATIENT
  Age: 18 Year
  Sex: Male

DRUGS (8)
  1. OXYGEN. [Concomitant]
     Active Substance: OXYGEN
  2. REMODULIN [Concomitant]
     Active Substance: TREPROSTINIL
  3. LETAIRIS [Suspect]
     Active Substance: AMBRISENTAN
     Indication: ASTHMA
  4. LETAIRIS [Suspect]
     Active Substance: AMBRISENTAN
     Indication: PULMONARY HYPERTENSION
     Dosage: 5 MG, QD
     Route: 065
     Dates: start: 20140115
  5. LETAIRIS [Suspect]
     Active Substance: AMBRISENTAN
     Indication: UNEVALUABLE EVENT
  6. LETAIRIS [Suspect]
     Active Substance: AMBRISENTAN
     Indication: CYTOGENETIC ABNORMALITY
  7. LETAIRIS [Suspect]
     Active Substance: AMBRISENTAN
     Indication: AUTISM SPECTRUM DISORDER
  8. ADCIRCA [Concomitant]
     Active Substance: TADALAFIL

REACTIONS (2)
  - Pneumonia [Unknown]
  - Oxygen saturation abnormal [Unknown]
